FAERS Safety Report 7218220-X (Version None)
Quarter: 2010Q4

REPORT INFORMATION
  Report Type: 
  Country: None (occurrence: None)
  Receive Date: 20101230
  Receipt Date: 20101217
  Transmission Date: 20110411
  Serious: Yes (Hospitalization)
  Sender: FDA-Public Use
  Company Number: 022967

PATIENT
  Sex: Male
  Weight: 84 kg

DRUGS (4)
  1. VIMPAT [Suspect]
     Indication: EPILEPSY
     Dosage: (200 MG BID ORAL)
     Route: 048
     Dates: start: 20081001, end: 20101101
  2. LAMOTRIGINE [Suspect]
     Indication: EPILEPSY
     Dosage: (300 MG 2X/2 DAYS ORAL)
     Route: 048
     Dates: start: 20040901, end: 20100901
  3. RUFINAMIDE (INOVELON) [Suspect]
     Indication: EPILEPSY
     Dosage: (400 MG BID ORAL)
     Route: 048
     Dates: start: 20070701
  4. CLOBAZAM [Concomitant]

REACTIONS (1)
  - LICHEN PLANUS [None]
